FAERS Safety Report 8426543-1 (Version None)
Quarter: 2012Q2

REPORT INFORMATION
  Report Type: 
  Country: None (occurrence: None)
  Receive Date: 20120611
  Receipt Date: 20120605
  Transmission Date: 20120825
  Serious: Yes (Other)
  Sender: FDA-Public Use
  Company Number: JP-PFIZER INC-2012135218

PATIENT
  Age: 41 Year
  Sex: Male

DRUGS (4)
  1. UNASYN [Suspect]
     Dosage: UNSPECIFIED DOSE (3 TABLETS) THREE TIMES DAILY
     Route: 048
  2. MONTELUKAST SODIUM [Concomitant]
     Dosage: UNK
  3. UNASYN [Suspect]
     Dosage: UNK
  4. GAMOFA [Concomitant]
     Dosage: UNK

REACTIONS (2)
  - ABDOMINAL PAIN [None]
  - HAEMATOCHEZIA [None]
